FAERS Safety Report 8089857-3 (Version None)
Quarter: 2012Q1

REPORT INFORMATION
  Report Type: 
  Country: None (occurrence: None)
  Receive Date: 20120128
  Receipt Date: 20110705
  Transmission Date: 20120608
  Serious: No
  Sender: FDA-Public Use
  Company Number: US-ABBOTT-11P-163-0836248-00

PATIENT
  Sex: Female

DRUGS (4)
  1. HUMIRA [Suspect]
     Indication: JUVENILE ARTHRITIS
     Dates: start: 20110501
  2. METHOTREXATE [Concomitant]
     Indication: PRODUCT USED FOR UNKNOWN INDICATION
     Route: 050
  3. TRAMADOL HCL [Concomitant]
     Indication: PRODUCT USED FOR UNKNOWN INDICATION
  4. FOLIC ACID [Concomitant]
     Indication: PRODUCT USED FOR UNKNOWN INDICATION

REACTIONS (4)
  - INJECTION SITE PAIN [None]
  - RASH PRURITIC [None]
  - RASH [None]
  - HEADACHE [None]
